FAERS Safety Report 6738753-X (Version None)
Quarter: 2010Q2

REPORT INFORMATION
  Report Type: 
  Country: None (occurrence: None)
  Receive Date: 20100524
  Receipt Date: 20100511
  Transmission Date: 20101027
  Serious: Yes (Life-Threatening, Other)
  Sender: FDA-Public Use
  Company Number: US-ELI_LILLY_AND_COMPANY-US201005002963

PATIENT
  Age: 90 Year
  Sex: Female

DRUGS (10)
  1. ZYPREXA [Suspect]
     Indication: GENERALISED ANXIETY DISORDER
     Dosage: 5 MG, 2/D
     Dates: start: 20091201
  2. ZYPREXA [Suspect]
     Dosage: 1 D/F, UNKNOWN
  3. SPIRIVA [Concomitant]
  4. FLONASE [Concomitant]
  5. CORDARONE [Concomitant]
     Dosage: 200 MG, UNK
  6. PREDNISONE [Concomitant]
     Dosage: 20 MG, UNK
  7. PROTONIX [Concomitant]
  8. ANUSOL [Concomitant]
  9. COREG [Concomitant]
     Dosage: 6.25 MG, UNK
  10. XANAX [Concomitant]
     Indication: ANXIETY
     Dosage: 0.25 MG, AS NEEDED

REACTIONS (11)
  - CARDIAC ARREST [None]
  - CARDIAC FAILURE CONGESTIVE [None]
  - COGNITIVE DISORDER [None]
  - FLUID OVERLOAD [None]
  - GAIT DISTURBANCE [None]
  - HAEMOLYTIC TRANSFUSION REACTION [None]
  - MOBILITY DECREASED [None]
  - OFF LABEL USE [None]
  - SOMNOLENCE [None]
  - SWELLING FACE [None]
  - TRANSIENT ISCHAEMIC ATTACK [None]
